FAERS Safety Report 15258952 (Version 2)
Quarter: 2018Q3

REPORT INFORMATION
  Report Type: Report from Study
  Country: None (occurrence: FR)
  Receive Date: 20180809
  Receipt Date: 20180912
  Transmission Date: 20181010
  Serious: Yes (Life-Threatening, Hospitalization, Other)
  Sender: FDA-Public Use
  Company Number: FR-ABBVIE-18S-056-2408147-00

PATIENT
  Age: 67 Year
  Sex: Male
  Weight: 60 kg

DRUGS (8)
  1. DUTASTERIDE + TAMUSLOSINE (DUODART) [Concomitant]
     Indication: PRODUCT USED FOR UNKNOWN INDICATION
     Route: 048
  2. DUODOPA [Suspect]
     Active Substance: CARBIDOPA\LEVODOPA
     Indication: PARKINSON^S DISEASE
     Route: 050
     Dates: start: 20180625, end: 20180711
  3. CARBIDOPA + ENTACAPONE + LEVODOPA (STALEVO) [Concomitant]
     Indication: PRODUCT USED FOR UNKNOWN INDICATION
     Route: 048
  4. SODIUM CHLORURE [Concomitant]
     Indication: PRODUCT USED FOR UNKNOWN INDICATION
     Route: 048
  5. SODIUM BICARBONATE + MACROGOL + POTASSIUM CHLORURE + SODIUM [Concomitant]
     Indication: PRODUCT USED FOR UNKNOWN INDICATION
     Route: 065
  6. PLUM TREE FROM AFRICA (TADENAN) [Concomitant]
     Indication: PRODUCT USED FOR UNKNOWN INDICATION
     Route: 048
  7. MIDODRINE (GUTRON) [Concomitant]
     Indication: PRODUCT USED FOR UNKNOWN INDICATION
     Route: 048
  8. CLONAZEPAM (RIVOTRIL) [Concomitant]
     Indication: PRODUCT USED FOR UNKNOWN INDICATION
     Route: 048

REACTIONS (8)
  - Acute respiratory distress syndrome [Recovered/Resolved]
  - Peritonitis [Recovered/Resolved]
  - Stoma site discharge [Recovered/Resolved]
  - Systemic inflammatory response syndrome [Recovered/Resolved]
  - Septic shock [Recovered/Resolved]
  - Weight decreased [Unknown]
  - Abdominal pain [Recovered/Resolved]
  - Vomiting [Recovered/Resolved]

NARRATIVE: CASE EVENT DATE: 201806
